FAERS Safety Report 4326818-1 (Version None)
Quarter: 2004Q1

REPORT INFORMATION
  Report Type: 
  Country: None (occurrence: None)
  Receive Date: 20040330
  Receipt Date: 20040324
  Transmission Date: 20041129
  Serious: Yes (Other)
  Sender: FDA-Public Use
  Company Number: 200412182US

PATIENT
  Sex: Female

DRUGS (1)
  1. LOVENOX [Suspect]
     Indication: KNEE ARTHROPLASTY
     Dosage: DOSE: UNK
     Dates: start: 20030515

REACTIONS (5)
  - BLISTER [None]
  - CONTUSION [None]
  - ERYTHEMA [None]
  - MYOCARDIAL INFARCTION [None]
  - SCAB [None]
